FAERS Safety Report 4689344-6 (Version None)
Quarter: 2005Q2

REPORT INFORMATION
  Report Type: 
  Country: None (occurrence: None)
  Receive Date: 20050608
  Receipt Date: 20050222
  Transmission Date: 20051028
  Serious: No
  Sender: FDA-Public Use
  Company Number: 2005-BP-02840BP

PATIENT
  Age: 63 Year
  Sex: Female

DRUGS (13)
  1. SPIRIVA [Suspect]
     Indication: ASTHMA
     Dosage: 18 MCG (18 MCG, QD), IH
     Route: 055
     Dates: start: 20050101
  2. SPIRIVA [Suspect]
     Indication: CHRONIC OBSTRUCTIVE PULMONARY DISEASE
     Dosage: 18 MCG (18 MCG, QD), IH
     Route: 055
     Dates: start: 20050101
  3. SPIRIVA [Suspect]
     Indication: ASTHMA
     Dosage: 18 MCG (18 MCG, QD), IH
     Route: 055
     Dates: start: 20050101
  4. SPIRIVA [Suspect]
     Indication: CHRONIC OBSTRUCTIVE PULMONARY DISEASE
     Dosage: 18 MCG (18 MCG, QD), IH
     Route: 055
     Dates: start: 20050101
  5. ZYRTEC [Concomitant]
  6. PRAVACHOL [Concomitant]
  7. SEREVENT [Concomitant]
  8. ADVAIR DISKUS 100/50 [Concomitant]
  9. CARDIZEM [Concomitant]
  10. PROVENTIL (SALBUTAMOL SULFATE) [Concomitant]
  11. NASOCORT (BUDESONIDE) [Concomitant]
  12. THYROID TAB [Concomitant]
  13. BENADRYL [Concomitant]

REACTIONS (1)
  - CHEST DISCOMFORT [None]
